FAERS Safety Report 5582570-3 (Version None)
Quarter: 2007Q4

REPORT INFORMATION
  Report Type: 
  Country: None (occurrence: None)
  Receive Date: 20071130
  Receipt Date: 20070412
  Transmission Date: 20080405
  Serious: Yes (Other)
  Sender: FDA-Public Use
  Company Number: WAES 0704USA02497

PATIENT
  Age: 53 Year
  Sex: Female
  Weight: 113.3993 kg

DRUGS (20)
  1. FOSAMAX [Suspect]
     Indication: ADRENOCORTICAL STEROID THERAPY
     Dosage: 70 MG/WKY/PO
     Route: 048
     Dates: end: 20070410
  2. FOSAMAX [Suspect]
     Indication: OSTEOPOROSIS
     Dosage: 70 MG/WKY/PO
     Route: 048
     Dates: end: 20070410
  3. ACTOS [Concomitant]
  4. CATAPRES [Concomitant]
  5. DURAGESIC-100 [Concomitant]
  6. GLUCOPHAGE [Concomitant]
  7. HUMULIN N [Concomitant]
  8. KLONOPIN [Concomitant]
  9. LAMICTAL [Concomitant]
  10. LASIX (FUROSEMJIDE) [Concomitant]
  11. LIPITOR [Concomitant]
  12. NORVASC [Concomitant]
  13. PAXIL [Concomitant]
  14. ZAROXOLYN [Concomitant]
  15. ASPIRIN [Concomitant]
  16. CALCIUM [Concomitant]
  17. LISINOPRIL [Concomitant]
  18. METHOTREXATE [Concomitant]
  19. PREDNISONE TAB [Concomitant]
  20. VITAMIN D [Concomitant]

REACTIONS (1)
  - OSTEONECROSIS [None]
